FAERS Safety Report 5021608-9 (Version None)
Quarter: 2006Q2

REPORT INFORMATION
  Report Type: 
  Country: None (occurrence: None)
  Receive Date: 20060605
  Receipt Date: 20060516
  Transmission Date: 20061013
  Serious: Yes (Other)
  Sender: FDA-Public Use
  Company Number: US200603006562

PATIENT
  Age: 65 Year
  Sex: Male
  Weight: 83.4 kg

DRUGS (2)
  1. HUMALOG MIX 75/25 [Suspect]
     Indication: DIABETES MELLITUS
     Dosage: 10 U, OTHER
     Dates: start: 20051001
  2. HUMALOG 25% LISPRO, 75% NPL) PEN,DISPOSABLE [Suspect]
     Dosage: 3/D

REACTIONS (7)
  - BLOOD GLUCOSE INCREASED [None]
  - ECZEMA [None]
  - GLYCOSYLATED HAEMOGLOBIN INCREASED [None]
  - HYPERTENSION [None]
  - IRON DEFICIENCY ANAEMIA [None]
  - PHARMACEUTICAL PRODUCT COMPLAINT [None]
  - STRESS [None]
